FAERS Safety Report 8941010 (Version 2)
Quarter: 2013Q1

REPORT INFORMATION
  Report Type: Spontaneous
  Country: US (occurrence: US)
  Receive Date: 20121203
  Receipt Date: 20130103
  Transmission Date: 20140127
  Serious: Yes (Hospitalization, Other)
  Sender: FDA-Public Use
  Company Number: US-BAYER-2012-126062

PATIENT
  Age: 50 Year
  Sex: Female
  Weight: 66.67 kg

DRUGS (7)
  1. BETASERON [Suspect]
     Indication: MULTIPLE SCLEROSIS
     Dosage: 0.25 MG, QOD
     Route: 058
     Dates: start: 201209
  2. ALPRAZOLAM [Concomitant]
     Indication: MULTIPLE SCLEROSIS
     Dosage: 0.5 UNK, BID
     Dates: start: 2006
  3. ALEVE CAPLET/TABLET,MIDOL EXTENDED RELIEF CAPLET [Concomitant]
     Dosage: 200 MG, PRN
  4. VITAMIN D [Concomitant]
     Indication: MULTIPLE SCLEROSIS
     Dosage: 400 IU, QD
     Dates: start: 2011
  5. VITAMIN B COMPLEX [Concomitant]
     Indication: MULTIPLE SCLEROSIS
     Dosage: 1-2 UNK, QD
  6. MULTIVITAMIN [Concomitant]
     Indication: SUPPLEMENTATION THERAPY
     Dosage: 1 UNK, QD
     Dates: start: 2011
  7. TRACE MINERALS [Concomitant]
     Indication: SUPPLEMENTATION THERAPY
     Dosage: 1-2 UNK, QD
     Dates: start: 2012

REACTIONS (8)
  - Viral infection [Recovered/Resolved]
  - Vomiting [Recovered/Resolved]
  - Fall [None]
  - Muscular weakness [None]
  - Dehydration [Recovered/Resolved]
  - Multiple sclerosis relapse [None]
  - Abasia [None]
  - Motor dysfunction [None]
